FAERS Safety Report 6489687-X (Version None)
Quarter: 2009Q4

REPORT INFORMATION
  Report Type: 
  Country: None (occurrence: None)
  Receive Date: 20091207
  Receipt Date: 20091120
  Transmission Date: 20100525
  Serious: Yes (Hospitalization)
  Sender: FDA-Public Use
  Company Number: 2009AL007405

PATIENT
  Age: 96 Year
  Sex: Female

DRUGS (1)
  1. CITALOPRAM HYDROBROMIDE TABLETS, 20 MG (PUREPAC) (CITALOPRAM HYDROBRO [Suspect]
     Dosage: 20 MG;QD

REACTIONS (8)
  - ASTHENIA [None]
  - BRADYPHRENIA [None]
  - DECREASED APPETITE [None]
  - DIZZINESS [None]
  - HYPONATRAEMIA [None]
  - INAPPROPRIATE ANTIDIURETIC HORMONE SECRETION [None]
  - RED BLOOD CELL SEDIMENTATION RATE INCREASED [None]
  - SOMNOLENCE [None]
